FAERS Safety Report 8083389-4 (Version None)
Quarter: 2012Q1

REPORT INFORMATION
  Report Type: 
  Country: None (occurrence: None)
  Receive Date: 20120127
  Receipt Date: 20110117
  Transmission Date: 20120608
  Serious: No
  Sender: FDA-Public Use
  Company Number: US-ABBOTT-11P-163-0697957-00

PATIENT
  Sex: Female
  Weight: 95.34 kg

DRUGS (5)
  1. RITUXAN [Suspect]
     Indication: RHEUMATOID ARTHRITIS
     Route: 042
     Dates: start: 20101220, end: 20101220
  2. HUMIRA [Suspect]
     Indication: RHEUMATOID ARTHRITIS
     Route: 048
     Dates: start: 20100101, end: 20101220
  3. HUMIRA [Suspect]
     Route: 058
     Dates: start: 20101227
  4. AUGMENTIN '125' [Suspect]
     Indication: SINUSITIS
     Route: 048
     Dates: start: 20101231, end: 20110101
  5. METHOTREXATE [Concomitant]
     Indication: RHEUMATOID ARTHRITIS
     Route: 048
     Dates: end: 20101221

REACTIONS (5)
  - SINUSITIS [None]
  - DRUG INEFFECTIVE [None]
  - PYREXIA [None]
  - DIARRHOEA [None]
  - FATIGUE [None]
